FAERS Safety Report 11384511 (Version 1)
Quarter: 2015Q3

REPORT INFORMATION
  Report Type: Spontaneous
  Country: US (occurrence: US)
  Receive Date: 20150811
  Receipt Date: 20150811
  Transmission Date: 20151125
  Serious: Yes (Other)
  Sender: FDA-Public Use
  Company Number: US-ELI_LILLY_AND_COMPANY-US201103005257

PATIENT
  Age: 69 Year
  Sex: Male

DRUGS (6)
  1. NEXIUM [Concomitant]
     Active Substance: ESOMEPRAZOLE MAGNESIUM
     Dosage: 1 D/F, UNK
  2. FISH OIL [Concomitant]
     Active Substance: FISH OIL
     Dosage: 1 D/F, UNK
  3. LIPITOR [Concomitant]
     Active Substance: ATORVASTATIN CALCIUM
     Dosage: 1 D/F, UNK
  4. CALCIUM [Concomitant]
     Active Substance: CALCIUM
     Dosage: 1 D/F, UNK
  5. CIALIS [Suspect]
     Active Substance: TADALAFIL
     Indication: ERECTILE DYSFUNCTION
     Dosage: 1 D/F, DAILY (1/D)
     Dates: start: 20110312
  6. ASPIRIN LOW DOSE [Concomitant]
     Active Substance: ASPIRIN
     Dosage: 1 D/F, UNK

REACTIONS (2)
  - Tinnitus [Unknown]
  - Sudden hearing loss [Unknown]

NARRATIVE: CASE EVENT DATE: 20110315
